FAERS Safety Report 5650808-X (Version None)
Quarter: 2008Q1

REPORT INFORMATION
  Report Type: 
  Country: None (occurrence: None)
  Receive Date: 20080131
  Receipt Date: 20071220
  Transmission Date: 20080703
  Serious: No
  Sender: FDA-Public Use
  Company Number: US200712002512

PATIENT
  Age: 57 Year
  Sex: Female

DRUGS (3)
  1. BYETTA [Suspect]
     Indication: DIABETES MELLITUS
     Dosage: 10 UG, 2/D, SUBCUTANEOUS
     Route: 058
     Dates: start: 20070101
  2. NOVOLOG [Concomitant]
  3. LEVEMIR (INSULIN DETEMIR) [Concomitant]

REACTIONS (3)
  - ASTHENIA [None]
  - BLOOD GLUCOSE DECREASED [None]
  - URTICARIA [None]
